FAERS Safety Report 15491456 (Version 1)
Quarter: 2018Q4

REPORT INFORMATION
  Report Type: Other
  Country: GB (occurrence: GB)
  Receive Date: 20181012
  Receipt Date: 20181012
  Transmission Date: 20190205
  Serious: No
  Sender: FDA-Public Use
  Company Number: GB-LUPIN PHARMACEUTICALS INC.-2018-03785

PATIENT
  Age: 5 Month
  Sex: Female
  Weight: 6 kg

DRUGS (3)
  1. BENZYDAMINE HYDROCHLORIDE [Concomitant]
     Active Substance: BENZYDAMINE HYDROCHLORIDE
     Indication: ILL-DEFINED DISORDER
     Dosage: UNK, USE EVERY 3 HRS
     Route: 065
     Dates: start: 20180306, end: 20180311
  2. CEFALEXIN [Suspect]
     Active Substance: CEPHALEXIN
     Indication: PRODUCT USED FOR UNKNOWN INDICATION
     Dosage: UNK
     Route: 065
     Dates: start: 20180426
  3. EMLA [Concomitant]
     Active Substance: LIDOCAINE\PRILOCAINE
     Indication: ILL-DEFINED DISORDER
     Dosage: UNK, APPLY AS DIRECTED
     Route: 065
     Dates: start: 20180205, end: 20180206

REACTIONS (1)
  - Rash [Unknown]

NARRATIVE: CASE EVENT DATE: 20180426
